FAERS Safety Report 9466534 (Version 1)
Quarter: 2013Q3

REPORT INFORMATION
  Report Type: Report from Study
  Country: CA (occurrence: CA)
  Receive Date: 20130820
  Receipt Date: 20130820
  Transmission Date: 20140515
  Serious: Yes (Other)
  Sender: FDA-Public Use
  Company Number: CA-JNJFOC-20130807797

PATIENT
  Sex: Female
  Weight: 75 kg

DRUGS (4)
  1. REMICADE [Suspect]
     Indication: COLITIS ULCERATIVE
     Route: 042
  2. PREDNISONE [Concomitant]
     Route: 065
  3. IMURAN [Concomitant]
     Route: 065
  4. CYMBALTA [Concomitant]
     Route: 065

REACTIONS (5)
  - Blister [Unknown]
  - Foot and mouth disease [Unknown]
  - Rash generalised [Unknown]
  - Abasia [Unknown]
  - Stomatitis [Unknown]
